FAERS Safety Report 25405783 (Version 2)
Quarter: 2025Q2

REPORT INFORMATION
  Report Type: Spontaneous
  Country: AU (occurrence: AU)
  Receive Date: 20250606
  Receipt Date: 20250611
  Transmission Date: 20250716
  Serious: Yes (Hospitalization)
  Sender: MYLAN
  Company Number: AU-MYLANLABS-2025M1047577

PATIENT
  Age: 61 Year
  Sex: Male

DRUGS (4)
  1. FENOFIBRATE [Suspect]
     Active Substance: FENOFIBRATE
     Indication: Dyslipidaemia
     Dosage: 145 MILLIGRAM, QD;
  2. FENOFIBRATE [Suspect]
     Active Substance: FENOFIBRATE
  3. GLICLAZIDE [Concomitant]
     Active Substance: GLICLAZIDE
     Indication: Type 2 diabetes mellitus
     Dosage: 60 MILLIGRAM, BID; GIVEN ON DAY 1 AND DAY 3, RESPECTIVELY AND CONTINUED FOR THE REMAINDER OF THE..
  4. OLANZAPINE [Concomitant]
     Active Substance: OLANZAPINE
     Indication: Schizophrenia
     Dosage: 10 MILLIGRAM, BID, GIVEN ON DAY 1 AND DAY 3, RESPECTIVELY AND CONTINUED..

REACTIONS (3)
  - Acute kidney injury [Recovered/Resolved]
  - Nephropathy [Recovered/Resolved]
  - Inappropriate schedule of product administration [Recovered/Resolved]
